FAERS Safety Report 6736391-6 (Version None)
Quarter: 2010Q2

REPORT INFORMATION
  Report Type: 
  Country: None (occurrence: None)
  Receive Date: 20100521
  Receipt Date: 20100517
  Transmission Date: 20101027
  Serious: Yes (Other)
  Sender: FDA-Public Use
  Company Number: US-MERCK-1005USA02413

PATIENT
  Sex: Female

DRUGS (1)
  1. PEPCID [Suspect]
     Route: 065

REACTIONS (3)
  - DRY EYE [None]
  - DRY MOUTH [None]
  - EYE DISORDER [None]
